FAERS Safety Report 6527370-2 (Version None)
Quarter: 2009Q4

REPORT INFORMATION
  Report Type: 
  Country: None (occurrence: None)
  Receive Date: 20091229
  Receipt Date: 20091214
  Transmission Date: 20100525
  Serious: No
  Sender: FDA-Public Use
  Company Number: 1000010421

PATIENT
  Age: 78 Year
  Sex: Female
  Weight: 65 kg

DRUGS (2)
  1. ESCITALOPRAM [Suspect]
     Indication: MAJOR DEPRESSION
     Dosage: 10 MG ( 10 MG, 1 IN 1 D), ORAL
     Route: 048
     Dates: start: 20091103, end: 20091108
  2. XANAX [Concomitant]

REACTIONS (1)
  - INSOMNIA [None]
